FAERS Safety Report 6643294-4 (Version None)
Quarter: 2010Q1

REPORT INFORMATION
  Report Type: 
  Country: None (occurrence: None)
  Receive Date: 20100319
  Receipt Date: 20100311
  Transmission Date: 20100710
  Serious: Yes (Hospitalization)
  Sender: FDA-Public Use
  Company Number: GXKR2010US03013

PATIENT
  Age: 31 Year
  Sex: Female

DRUGS (4)
  1. PARACETAMOL (NGX) [Suspect]
     Route: 048
  2. ZOLPIDEM (NGX) [Suspect]
     Route: 048
  3. CLONAZEPAM (NGX) [Suspect]
     Route: 048
  4. HYDROCHLORIC ACID [Suspect]
     Route: 048

REACTIONS (9)
  - ACIDOSIS [None]
  - ANAEMIA [None]
  - COAGULOPATHY [None]
  - ENDOTRACHEAL INTUBATION [None]
  - HAEMATEMESIS [None]
  - HYPOTENSION [None]
  - OVERDOSE [None]
  - RESPIRATORY FAILURE [None]
  - TRANSAMINASES INCREASED [None]
